FAERS Safety Report 5304756-5 (Version None)
Quarter: 2007Q1

REPORT INFORMATION
  Report Type: 
  Country: None (occurrence: None)
  Receive Date: 20070201
  Receipt Date: 20061115
  Transmission Date: 20070707
  Serious: No
  Sender: FDA-Public Use
  Company Number: 2006PV025319

PATIENT
  Age: 69 Year
  Sex: Female
  Weight: 82.1011 kg

DRUGS (5)
  1. BYETTA [Suspect]
     Indication: DIABETES MELLITUS NON-INSULIN-DEPENDENT
     Dosage: 10 MCG;BID; SC :  5 MCG;BID; SC
     Route: 058
     Dates: start: 20061010, end: 20061110
  2. BYETTA [Suspect]
     Indication: DIABETES MELLITUS NON-INSULIN-DEPENDENT
     Dosage: 10 MCG;BID; SC :  5 MCG;BID; SC
     Route: 058
     Dates: start: 20061111
  3. METFORMIN HCL [Concomitant]
  4. NOVOLOG MIX 70/30 [Concomitant]
  5. METOPROLOL SUCCINATE [Concomitant]

REACTIONS (3)
  - ERUCTATION [None]
  - FEELING JITTERY [None]
  - SENSATION OF FOREIGN BODY [None]
